FAERS Safety Report 7239564-1 (Version None)
Quarter: 2011Q1

REPORT INFORMATION
  Report Type: 
  Country: None (occurrence: None)
  Receive Date: 20110121
  Receipt Date: 20110114
  Transmission Date: 20110831
  Serious: No
  Sender: FDA-Public Use
  Company Number: US-B.I. PHARMACEUTICALS,INC./RIDGEFIELD-2011-BP-01264BP

PATIENT
  Age: 76 Year
  Sex: Male

DRUGS (4)
  1. ASA [Concomitant]
     Indication: PROPHYLAXIS
  2. MULTAQ [Concomitant]
     Indication: ATRIAL FIBRILLATION
  3. ZOCOR [Concomitant]
     Indication: BLOOD CHOLESTEROL INCREASED
  4. PRADAXA [Suspect]
     Indication: ATRIAL FIBRILLATION
     Dosage: 300 MG
     Route: 048
     Dates: start: 20101101

REACTIONS (3)
  - BLOOD URINE PRESENT [None]
  - MUCOSAL HAEMORRHAGE [None]
  - NEPHROLITHIASIS [None]
